FAERS Safety Report 24933860 (Version 1)
Quarter: 2025Q1

REPORT INFORMATION
  Report Type: Report from Study
  Country: US (occurrence: US)
  Receive Date: 20250206
  Receipt Date: 20250206
  Transmission Date: 20250409
  Serious: Yes (Death, Hospitalization)
  Sender: EXELIXIS
  Company Number: US-EXELIXIS-CABO-24075318

PATIENT
  Age: 20 Year
  Sex: Male

DRUGS (6)
  1. CABOMETYX [Suspect]
     Active Substance: CABOZANTINIB S-MALATE
     Indication: Osteosarcoma metastatic
     Dosage: 60 MG, QD
     Route: 048
     Dates: start: 20230715, end: 20230817
  2. CABOMETYX [Suspect]
     Active Substance: CABOZANTINIB S-MALATE
     Dosage: 40 MG, QD
     Route: 048
     Dates: start: 20230831, end: 20231028
  3. CABOMETYX [Suspect]
     Active Substance: CABOZANTINIB S-MALATE
     Dosage: 40 MG, QD
     Route: 048
     Dates: start: 20231031, end: 20231204
  4. LENVIMA [Suspect]
     Active Substance: LENVATINIB
     Indication: Osteosarcoma metastatic
     Dosage: UNK, QD
  5. EVEROLIMUS [Concomitant]
     Active Substance: EVEROLIMUS
  6. ONDANSETRON HYDROCHLORIDE [Concomitant]
     Active Substance: ONDANSETRON HYDROCHLORIDE

REACTIONS (8)
  - Asthenia [Unknown]
  - Spinal decompression [Unknown]
  - Back pain [Unknown]
  - Malignant neoplasm progression [Fatal]
  - Metastases to meninges [Fatal]
  - Arthralgia [Unknown]
  - Palmar-plantar erythrodysaesthesia syndrome [Unknown]
  - Off label use [Unknown]

NARRATIVE: CASE EVENT DATE: 20231205
